FAERS Safety Report 22619754 (Version 1)
Quarter: 2023Q2

REPORT INFORMATION
  Report Type: Spontaneous
  Country: CN (occurrence: CN)
  Receive Date: 20230620
  Receipt Date: 20230620
  Transmission Date: 20230722
  Serious: Yes (Hospitalization, Other)
  Sender: FDA-Public Use
  Company Number: CN-VIIV HEALTHCARE LIMITED-CN2023APC082495

PATIENT

DRUGS (22)
  1. DOVATO [Suspect]
     Active Substance: DOLUTEGRAVIR SODIUM\LAMIVUDINE
     Indication: HIV infection
     Dosage: 1 DF, QD
     Route: 048
     Dates: end: 20230517
  2. DOLUTEGRAVIR [Suspect]
     Active Substance: DOLUTEGRAVIR
     Indication: Antiviral treatment
     Dosage: UNK
     Dates: start: 20220916
  3. LAMIVUDINE [Suspect]
     Active Substance: LAMIVUDINE
     Indication: HIV infection
     Dosage: UNK
  4. CLARITHROMYCIN [Suspect]
     Active Substance: CLARITHROMYCIN
     Indication: Pulmonary tuberculosis
     Dosage: 0.500 G, QD
     Route: 048
     Dates: end: 20230517
  5. CLARITHROMYCIN [Suspect]
     Active Substance: CLARITHROMYCIN
     Indication: Anti-infective therapy
  6. RIFAMPIN [Suspect]
     Active Substance: RIFAMPIN
     Indication: Pulmonary tuberculosis
     Dosage: 0.450 G, QD
     Route: 048
     Dates: end: 20230517
  7. TENOFOVIR DISOPROXIL FUMARATE [Suspect]
     Active Substance: TENOFOVIR DISOPROXIL FUMARATE
     Indication: Acquired immunodeficiency syndrome
     Dosage: 300 MG, QD
     Route: 048
     Dates: start: 20220916, end: 20230517
  8. ETHAMBUTOL HYDROCHLORIDE [Suspect]
     Active Substance: ETHAMBUTOL HYDROCHLORIDE
     Indication: Pulmonary tuberculosis
     Dosage: 0.750 G, QD
     Route: 048
     Dates: end: 20230517
  9. ETHAMBUTOL HYDROCHLORIDE [Suspect]
     Active Substance: ETHAMBUTOL HYDROCHLORIDE
     Indication: Anti-infective therapy
  10. ETHAMBUTOL HYDROCHLORIDE [Suspect]
     Active Substance: ETHAMBUTOL HYDROCHLORIDE
     Indication: Mycobacterial infection
  11. CLINDAMYCIN HYDROCHLORIDE [Suspect]
     Active Substance: CLINDAMYCIN HYDROCHLORIDE
     Indication: Prophylaxis
     Dosage: 0.45 G, QD
     Route: 048
     Dates: end: 20230517
  12. CLINDAMYCIN HYDROCHLORIDE [Suspect]
     Active Substance: CLINDAMYCIN HYDROCHLORIDE
     Indication: Anti-infective therapy
  13. EMTRICITABINE [Suspect]
     Active Substance: EMTRICITABINE
     Indication: Antiviral treatment
     Dosage: UNK
     Dates: start: 20220916
  14. FILGRASTIM [Suspect]
     Active Substance: FILGRASTIM
     Indication: White blood cell count abnormal
     Dosage: UNK
  15. BETAMETHASONE VALERATE\NEOMYCIN SULFATE [Suspect]
     Active Substance: BETAMETHASONE VALERATE\NEOMYCIN SULFATE
     Indication: HIV infection
     Dosage: UNK
  16. ATRIPLA [Concomitant]
     Active Substance: EFAVIRENZ\EMTRICITABINE\TENOFOVIR DISOPROXIL FUMARATE
     Indication: Acquired immunodeficiency syndrome
     Dosage: UNK
  17. SULFAMETHOXAZOLE [Concomitant]
     Active Substance: SULFAMETHOXAZOLE
     Indication: Antifungal prophylaxis
     Dosage: UNK
  18. FLUCONAZOLE [Concomitant]
     Active Substance: FLUCONAZOLE
     Indication: Antifungal prophylaxis
     Dosage: UNK
  19. RIFABUTIN [Concomitant]
     Active Substance: RIFABUTIN
     Indication: Mycobacterial infection
     Dosage: UNK
  20. RIFABUTIN [Concomitant]
     Active Substance: RIFABUTIN
     Indication: Anti-infective therapy
  21. AZITHROMYCIN [Concomitant]
     Active Substance: AZITHROMYCIN
     Indication: Mycobacterial infection
     Dosage: UNK
  22. LEVOFLOXACIN [Concomitant]
     Active Substance: LEVOFLOXACIN
     Indication: Mycobacterial infection
     Dosage: UNK

REACTIONS (9)
  - Pyrexia [Unknown]
  - Abdominal discomfort [Unknown]
  - Chronic hepatitis B [Unknown]
  - Rash pruritic [Recovering/Resolving]
  - White blood cell count abnormal [Unknown]
  - Abdominal pain upper [Unknown]
  - Abdominal pain [Unknown]
  - Eosinophil count increased [Unknown]
  - Drug hypersensitivity [Unknown]

NARRATIVE: CASE EVENT DATE: 20230509
